FAERS Safety Report 20199554 (Version 1)
Quarter: 2021Q4

REPORT INFORMATION
  Report Type: Spontaneous
  Country: US (occurrence: US)
  Receive Date: 20211217
  Receipt Date: 20211217
  Transmission Date: 20220303
  Serious: No
  Sender: FDA-Public Use
  Company Number: US-ORG100016242-2021000308

PATIENT

DRUGS (3)
  1. EXPAREL [Suspect]
     Active Substance: BUPIVACAINE
     Dosage: 20 ML OF EXPAREL ADMIXED WITH 20 ML?0.25% BUPI AND 20 ML SALINE
     Route: 065
  2. BUPIVACAINE [Suspect]
     Active Substance: BUPIVACAINE
     Dosage: 20 ML 0.25% BUPI ADMIXED WITH 20 ML OF EXPAREL AND 20 ML SALINE
     Route: 065
  3. SALINE [Concomitant]
     Active Substance: SODIUM CHLORIDE
     Dosage: 20 ML SALINE ADMIXED WITH 20 ML OF EXPAREL AND 20 ML 0.25% BUPI
     Route: 065

REACTIONS (1)
  - Intra-abdominal fluid collection [Unknown]
